FAERS Safety Report 5568802-6 (Version None)
Quarter: 2007Q4

REPORT INFORMATION
  Report Type: 
  Country: None (occurrence: None)
  Receive Date: 20071220
  Receipt Date: 20070116
  Transmission Date: 20080405
  Serious: No
  Sender: FDA-Public Use
  Company Number: A0635774A

PATIENT
  Age: 76 Year
  Sex: Male

DRUGS (4)
  1. AVODART [Suspect]
     Dosage: .5MG PER DAY
  2. FLOMAX [Concomitant]
     Dosage: .4MG AT NIGHT
  3. ATENOLOL [Concomitant]
     Indication: ATRIAL FIBRILLATION
     Dosage: 2MG TWICE PER DAY
  4. WARFARIN SODIUM [Concomitant]
     Dosage: 2MG AT NIGHT

REACTIONS (3)
  - DISCOMFORT [None]
  - INSOMNIA [None]
  - NOCTURIA [None]
